FAERS Safety Report 17782544 (Version 1)
Quarter: 2020Q2

REPORT INFORMATION
  Report Type: Spontaneous
  Country: US (occurrence: US)
  Receive Date: 20200514
  Receipt Date: 20200514
  Transmission Date: 20200714
  Serious: No
  Sender: FDA-Public Use
  Company Number: US-GALDERMA-US2020018455

PATIENT
  Age: 12 Year
  Sex: Female

DRUGS (6)
  1. PROACTIV MD DAILY OIL CONTROL SPF 30 [Suspect]
     Active Substance: AVOBENZONE\OCTISALATE\OCTOCRYLENE
     Indication: ACNE
     Route: 061
     Dates: start: 20200315, end: 20200318
  2. PROACTIV AMAZONIAN CLAY MASK [Concomitant]
     Indication: ACNE
     Route: 061
     Dates: start: 20200315, end: 20200318
  3. PROACTIV MD BALANCING TONER [Concomitant]
     Active Substance: COSMETICS
     Indication: ACNE
     Route: 061
     Dates: start: 20200315, end: 20200318
  4. PROACTIV EYE BRIGHTENING SERUM [Concomitant]
     Active Substance: COSMETICS
     Indication: ACNE
     Route: 061
     Dates: start: 20200315, end: 20200318
  5. PROACTIV T-ZONE OIL ABSORBER [Concomitant]
     Indication: ACNE
     Route: 061
     Dates: start: 20200315, end: 20200318
  6. PROACTIV MD ADAPALENE ACNE TREATMENT [Suspect]
     Active Substance: ADAPALENE
     Indication: ACNE
     Dosage: 0.1%
     Route: 061
     Dates: start: 20200315, end: 20200318

REACTIONS (2)
  - Swelling face [Recovering/Resolving]
  - Eye swelling [Recovering/Resolving]

NARRATIVE: CASE EVENT DATE: 20200315
